FAERS Safety Report 7224251-6 (Version None)
Quarter: 2011Q1

REPORT INFORMATION
  Report Type: 
  Country: None (occurrence: None)
  Receive Date: 20110113
  Receipt Date: 20101230
  Transmission Date: 20110831
  Serious: Yes (Other)
  Sender: FDA-Public Use
  Company Number: DK-RANBAXY-2010R1-40881

PATIENT
  Age: 39 Year
  Sex: Female

DRUGS (3)
  1. PARACETAMOL [Suspect]
     Dosage: 1G, 1-2 DAYS PER WEEK.
     Route: 065
  2. IBUPROFEN [Suspect]
     Indication: PRODUCT USED FOR UNKNOWN INDICATION
     Dosage: 400 MG, QID
     Route: 065
  3. PARACETAMOL [Suspect]
     Indication: PRODUCT USED FOR UNKNOWN INDICATION
     Dosage: 1 G, QID
     Route: 065

REACTIONS (1)
  - HEADACHE [None]
